FAERS Safety Report 8503290-9 (Version None)
Quarter: 2012Q2

REPORT INFORMATION
  Report Type: 
  Country: None (occurrence: None)
  Receive Date: 20120405
  Receipt Date: 20110318
  Transmission Date: 20120825
  Serious: Yes (Other)
  Sender: FDA-Public Use
  Company Number: PHHY2010US24074

PATIENT
  Age: 72 Year
  Sex: Male

DRUGS (1)
  1. RECLAST [Suspect]
     Dosage: YEARLY, INTRAVENOUS
     Route: 042

REACTIONS (6)
  - BONE PAIN [None]
  - MYALGIA [None]
  - ARTHRALGIA [None]
  - PAIN [None]
  - JOINT SWELLING [None]
  - PYREXIA [None]
